FAERS Safety Report 11067492 (Version 4)
Quarter: 2015Q2

REPORT INFORMATION
  Report Type: Report from Study
  Country: US (occurrence: US)
  Receive Date: 20150427
  Receipt Date: 20150622
  Transmission Date: 20150821
  Serious: Yes (Hospitalization, Other)
  Sender: FDA-Public Use
  Company Number: US-ALEXION-A201501393

PATIENT

DRUGS (1)
  1. SOLIRIS [Suspect]
     Active Substance: ECULIZUMAB
     Indication: HAEMOLYTIC URAEMIC SYNDROME
     Dosage: UNK
     Route: 042

REACTIONS (10)
  - Pyrexia [Unknown]
  - Thrombocytopenia [Unknown]
  - Alopecia [Not Recovered/Not Resolved]
  - Platelet count decreased [Unknown]
  - Headache [Unknown]
  - Drug ineffective [Not Recovered/Not Resolved]
  - Fatigue [Not Recovered/Not Resolved]
  - Red blood cell schistocytes present [Unknown]
  - Haemoglobin decreased [Unknown]
  - Infection [Unknown]

NARRATIVE: CASE EVENT DATE: 20150415
